FAERS Safety Report 7015140-0 (Version None)
Quarter: 2010Q3

REPORT INFORMATION
  Report Type: 
  Country: None (occurrence: None)
  Receive Date: 20100927
  Receipt Date: 20091015
  Transmission Date: 20110219
  Serious: No
  Sender: FDA-Public Use
  Company Number: US-ASTRAZENECA-2009SE20437

PATIENT
  Age: 56 Year
  Sex: Female
  Weight: 52.3 kg

DRUGS (2)
  1. ARIMIDEX [Suspect]
  2. EPICAC [Concomitant]

REACTIONS (1)
  - INTENTIONAL DRUG MISUSE [None]
